FAERS Safety Report 10265063 (Version 1)
Quarter: 2014Q2

REPORT INFORMATION
  Report Type: Spontaneous
  Country: US (occurrence: None)
  Receive Date: 20140530
  Receipt Date: 20140530
  Transmission Date: 20141212
  Serious: Yes (Hospitalization)
  Sender: FDA-Public Use
  Company Number: 2013035368

PATIENT
  Age: 61 Year
  Sex: Male
  Weight: 55.79 kg

DRUGS (24)
  1. HIZENTRA (IMMUNOGLOBULIN HUMAN NORMAL) [Suspect]
     Indication: IMMUNODEFICIENCY COMMON VARIABLE
     Route: 058
     Dates: start: 20130403
  2. ACETAMINOPHEN (PARACETAMOL) [Concomitant]
  3. DIPHENHYDRAMINE [Concomitant]
  4. LIDOCAINE/PRILOCAINE (EMLA / 00675501/) [Concomitant]
  5. EPI-PEN (EPINEPHRINE) [Concomitant]
  6. PREDNISONE [Concomitant]
  7. DILTIAZEM [Concomitant]
  8. ALBUTEROL (SALBUTAMOL) [Concomitant]
  9. ACTOPLUS (ALL OTHER THERAPEUTIC PRODUCTS) [Concomitant]
  10. PROVENTIL (SALBUTAMOL) [Concomitant]
  11. AZITHROMYCIN [Concomitant]
  12. MELOXICAM [Concomitant]
  13. HYDROCODONE-APAP (PROCET /01554201/) [Concomitant]
  14. DOXYCYCLINE [Concomitant]
  15. LEVAQUIN (LEVOFLOXACIN) [Concomitant]
  16. ATROVENT (IPRATROPIUM BROMIDE) [Concomitant]
  17. TYLENOL/CODEINE (PANADEINE CO) [Concomitant]
  18. SINGULAIR (MONTELUKAST) [Concomitant]
  19. LIPITOR (ATORVASTATIN CALCIUM) [Concomitant]
  20. ADVAIR (SERETIDE /01420901/) [Concomitant]
  21. ATROVENT (IPRATROPIUM BROMIDE) [Concomitant]
  22. SPIRIVA [Concomitant]
  23. LISINOPRIL-HCTZ (PRINZIDE/00977901/) [Concomitant]
  24. CARDIZEM (DILTIAZEM) [Concomitant]

REACTIONS (1)
  - Urticaria [None]
